FAERS Safety Report 6737923-4 (Version None)
Quarter: 2010Q2

REPORT INFORMATION
  Report Type: 
  Country: None (occurrence: None)
  Receive Date: 20100521
  Receipt Date: 20100521
  Transmission Date: 20101027
  Serious: No
  Sender: FDA-Public Use
  Company Number: None

PATIENT

DRUGS (1)
  1. PROCHLORPERAZINE [Suspect]

REACTIONS (2)
  - COORDINATION ABNORMAL [None]
  - MUSCLE SPASMS [None]
